FAERS Safety Report 4621546-7 (Version None)
Quarter: 2005Q1

REPORT INFORMATION
  Report Type: 
  Country: None (occurrence: None)
  Receive Date: 20050328
  Receipt Date: 20040614
  Transmission Date: 20050727
  Serious: No
  Sender: FDA-Public Use
  Company Number: 9793

PATIENT
  Age: 67 Year
  Sex: Male

DRUGS (2)
  1. METHOTREXATE [Suspect]
  2. AMOXICILLIN SODIUM/CLAVULANATE POTASSIUM [Suspect]
     Dosage: 3 G
     Dates: start: 20040126, end: 20040202

REACTIONS (2)
  - LEUKOPENIA [None]
  - NEUTROPENIA [None]
